FAERS Safety Report 8028799-6 (Version None)
Quarter: 2012Q1

REPORT INFORMATION
  Report Type: 
  Country: None (occurrence: None)
  Receive Date: 20120106
  Receipt Date: 20110118
  Transmission Date: 20120608
  Serious: Yes (Hospitalization)
  Sender: FDA-Public Use
  Company Number: SA-NOVOPROD-320689

PATIENT
  Sex: Male

DRUGS (2)
  1. NOVOLOG MIX 70/30 [Suspect]
     Dosage: 30 IU, QD
     Route: 058
     Dates: start: 20100807
  2. NOVOLOG MIX 70/30 [Suspect]
     Indication: TYPE 2 DIABETES MELLITUS
     Dosage: 48 IU, QD
     Route: 058
     Dates: start: 20100511, end: 20100807

REACTIONS (1)
  - MYOCARDIAL INFARCTION [None]
